FAERS Safety Report 7712052-1 (Version None)
Quarter: 2011Q3

REPORT INFORMATION
  Report Type: 
  Country: None (occurrence: None)
  Receive Date: 20110826
  Receipt Date: 20110822
  Transmission Date: 20111222
  Serious: Yes (Other)
  Sender: FDA-Public Use
  Company Number: GB-PFIZER INC-2011194668

PATIENT
  Sex: Female

DRUGS (1)
  1. GABAPENTIN [Suspect]
     Dosage: 200 MG, 2X/DAY

REACTIONS (4)
  - BLOOD PRESSURE INCREASED [None]
  - RENAL IMPAIRMENT [None]
  - MYASTHENIA GRAVIS [None]
  - EPIDERMAL GROWTH FACTOR RECEPTOR DECREASED [None]
